FAERS Safety Report 24944637 (Version 1)
Quarter: 2025Q1

REPORT INFORMATION
  Report Type: Report from Study
  Country: CA (occurrence: CA)
  Receive Date: 20250208
  Receipt Date: 20250208
  Transmission Date: 20250408
  Serious: Yes (Other)
  Sender: ABBVIE
  Company Number: CA-ABBVIE-6120966

PATIENT
  Sex: Male

DRUGS (1)
  1. SKYRIZI [Suspect]
     Active Substance: RISANKIZUMAB-RZAA
     Indication: Crohn^s disease
     Dosage: 1 PRE-FILLED CARTRIDGE?FORM STRENGTH: 360MG/2.4ML
     Route: 058
     Dates: start: 20230314

REACTIONS (1)
  - Meniscus injury [Not Recovered/Not Resolved]
